FAERS Safety Report 5218191-1 (Version None)
Quarter: 2007Q1

REPORT INFORMATION
  Report Type: 
  Country: None (occurrence: None)
  Receive Date: 20061130
  Receipt Date: 20060530
  Transmission Date: 20070707
  Serious: Yes (Hospitalization, Other)
  Sender: FDA-Public Use
  Company Number: US200603000269

PATIENT
  Age: 36 Year
  Sex: Male
  Weight: 81.6 kg

DRUGS (6)
  1. ZYPREXA [Suspect]
     Dosage: SEE IMAGE
     Dates: start: 20011201, end: 20020101
  2. ZYPREXA [Suspect]
     Dosage: SEE IMAGE
     Dates: start: 20020101, end: 20030501
  3. ZYPREXA [Suspect]
     Dosage: SEE IMAGE
     Dates: start: 20030501, end: 20040101
  4. CELEXA [Concomitant]
  5. HYDROXYZINE [Concomitant]
  6. TRAZODONE HCL [Concomitant]

REACTIONS (5)
  - BLOOD GLUCOSE INCREASED [None]
  - DIABETES MELLITUS INSULIN-DEPENDENT [None]
  - DIABETIC KETOACIDOSIS [None]
  - PRESCRIBED OVERDOSE [None]
  - WEIGHT INCREASED [None]
